FAERS Safety Report 8981040 (Version 12)
Quarter: 2017Q3

REPORT INFORMATION
  Report Type: Report from Study
  Country: CA (occurrence: CA)
  Receive Date: 20121221
  Receipt Date: 20170921
  Transmission Date: 20171128
  Serious: Yes (Hospitalization, Other)
  Sender: FDA-Public Use
  Company Number: CA-ROCHE-1168159

PATIENT
  Sex: Female
  Weight: 83.9 kg

DRUGS (24)
  1. ADVAIR HFA [Suspect]
     Active Substance: FLUTICASONE PROPIONATE\SALMETEROL XINAFOATE
     Indication: PRODUCT USED FOR UNKNOWN INDICATION
     Route: 065
     Dates: end: 201412
  2. SIMVASTATIN. [Concomitant]
     Active Substance: SIMVASTATIN
  3. PROLIA [Concomitant]
     Active Substance: DENOSUMAB
     Route: 065
  4. FOLIC ACID. [Concomitant]
     Active Substance: FOLIC ACID
  5. TECTA [Concomitant]
     Active Substance: PANTOPRAZOLE MAGNESIUM
  6. PULMICORT NEBULIZER [Concomitant]
  7. SPIRIVA [Concomitant]
     Active Substance: TIOTROPIUM BROMIDE MONOHYDRATE
     Route: 065
     Dates: start: 201403
  8. DIPHENHYDRAMINE HYDROCHLORIDE. [Concomitant]
     Active Substance: DIPHENHYDRAMINE HYDROCHLORIDE
     Indication: PREMEDICATION
     Route: 048
     Dates: start: 20110512
  9. DETROL [Suspect]
     Active Substance: TOLTERODINE TARTRATE
     Indication: URINARY RETENTION
     Route: 065
  10. ZOPICLONE [Suspect]
     Active Substance: ZOPICLONE
     Indication: PRODUCT USED FOR UNKNOWN INDICATION
     Route: 065
  11. SINGULAIR [Concomitant]
     Active Substance: MONTELUKAST SODIUM
  12. VITAMIN B COMPLEX [Concomitant]
     Active Substance: CYANOCOBALAMIN\DEXPANTHENOL\NIACINAMIDE\PYRIDOXINE HYDROCHLORIDE\RIBOFLAVIN 5^-PHOSPHATE SODIUM\THIAMINE HYDROCHLORIDE\VITAMIN B COMPLEX
  13. CYMBALTA [Concomitant]
     Active Substance: DULOXETINE HYDROCHLORIDE
  14. VENTOLIN [Concomitant]
     Active Substance: ALBUTEROL SULFATE
     Dosage: AS REQUIRED
     Route: 065
  15. RITUXAN [Suspect]
     Active Substance: RITUXIMAB
     Indication: RHEUMATOID ARTHRITIS
     Dosage: FREQUENCY : DAY 1 + 15?MOST RECENT DOSE ON 23/APR/2014
     Route: 042
     Dates: start: 20110512, end: 20160225
  16. RITALIN [Suspect]
     Active Substance: METHYLPHENIDATE HYDROCHLORIDE
     Indication: PRODUCT USED FOR UNKNOWN INDICATION
     Route: 065
  17. AMLODIPINE [Concomitant]
     Active Substance: AMLODIPINE BESYLATE
  18. ZENHALE [Concomitant]
     Active Substance: FORMOTEROL FUMARATE\MOMETASONE FUROATE
  19. ACETAMINOPHEN. [Concomitant]
     Active Substance: ACETAMINOPHEN
     Indication: PREMEDICATION
     Route: 048
     Dates: start: 20110512
  20. METHYLPREDNISOLONE. [Concomitant]
     Active Substance: METHYLPREDNISOLONE
     Indication: PREMEDICATION
     Route: 042
     Dates: start: 20110512
  21. PREDNISONE. [Concomitant]
     Active Substance: PREDNISONE
  22. GAVISCON (ALGINIC ACID) [Concomitant]
     Active Substance: ALGINIC ACID
     Route: 065
  23. COMBIVENT [Concomitant]
     Active Substance: ALBUTEROL SULFATE\IPRATROPIUM BROMIDE
  24. OMEGA 3-6-9 (CANADA) [Concomitant]

REACTIONS (16)
  - Pneumonia [Unknown]
  - Retinal detachment [Recovered/Resolved]
  - Sjogren^s syndrome [Not Recovered/Not Resolved]
  - Balance disorder [Unknown]
  - Asthma [Unknown]
  - Neuropathy peripheral [Recovering/Resolving]
  - Pneumonia [Unknown]
  - Cataract [Unknown]
  - Drug effect decreased [Unknown]
  - Lung disorder [Not Recovered/Not Resolved]
  - Pain in extremity [Unknown]
  - Fibromyalgia [Recovering/Resolving]
  - Nasopharyngitis [Unknown]
  - Laceration [Unknown]
  - Confusional state [Unknown]
  - Lung infection [Unknown]

NARRATIVE: CASE EVENT DATE: 2012
